FAERS Safety Report 8274430-4 (Version None)
Quarter: 2012Q2

REPORT INFORMATION
  Report Type: 
  Country: None (occurrence: None)
  Receive Date: 20120411
  Receipt Date: 20120330
  Transmission Date: 20120825
  Serious: Yes (Death, Hospitalization)
  Sender: FDA-Public Use
  Company Number: DE-ROCHE-1041078

PATIENT
  Age: 39 Year
  Sex: Male
  Weight: 69 kg

DRUGS (8)
  1. LEUCOVORIN CALCIUM [Concomitant]
     Indication: COLON CANCER
  2. FLUOROURACIL [Concomitant]
     Indication: COLON CANCER
     Route: 040
     Dates: start: 20110720, end: 20120202
  3. AVASTIN [Suspect]
     Indication: COLON CANCER
     Route: 042
     Dates: start: 20110831, end: 20120131
  4. NOREPINEPHRINE BITARTRATE [Suspect]
     Indication: SEPTIC SHOCK
     Dates: start: 20120208
  5. OXALIPLATIN [Concomitant]
     Indication: COLON CANCER
  6. SODIUM FOLINATE [Concomitant]
     Indication: COLON CANCER
     Route: 042
     Dates: start: 20110720, end: 20120202
  7. FLUOROURACIL [Concomitant]
     Route: 042
     Dates: start: 20110720, end: 20120131
  8. IRINOTECAN HCL [Concomitant]
     Indication: COLON CANCER
     Dates: start: 20120131

REACTIONS (5)
  - NEUTROPENIA [None]
  - DEVICE RELATED INFECTION [None]
  - SEPTIC SHOCK [None]
  - EXTREMITY NECROSIS [None]
  - ACUTE RESPIRATORY DISTRESS SYNDROME [None]
